FAERS Safety Report 16724859 (Version 5)
Quarter: 2020Q1

REPORT INFORMATION
  Report Type: Report from Study
  Country: PA (occurrence: PA)
  Receive Date: 20190821
  Receipt Date: 20200323
  Transmission Date: 20200409
  Serious: Yes (Other)
  Sender: FDA-Public Use
  Company Number: PA-INCYTE CORPORATION-2019IN008489

PATIENT

DRUGS (4)
  1. JAKAVI [Suspect]
     Active Substance: RUXOLITINIB
     Indication: WHITE BLOOD CELL COUNT INCREASED
     Dosage: 3 DF, BID (3 TABLETS OF 5 MG)
     Route: 065
  2. JAKAVI [Suspect]
     Active Substance: RUXOLITINIB
     Dosage: 4 DF, QD (2 TABLETS OF 5 MG AND 2 TABLETS OF 10 MG)
     Route: 065
  3. JAKAVI [Suspect]
     Active Substance: RUXOLITINIB
     Dosage: UNK
     Route: 065
  4. CROMATONBIC FERRO [FERROUS LACTATE] [Concomitant]
     Indication: PRODUCT USED FOR UNKNOWN INDICATION
     Dosage: 1 DF (AMPOULE), QD
     Route: 065

REACTIONS (14)
  - Asthma [Recovering/Resolving]
  - Visual impairment [Not Recovered/Not Resolved]
  - Syncope [Unknown]
  - Cardiac disorder [Unknown]
  - Product dose omission [Unknown]
  - Cataract [Not Recovered/Not Resolved]
  - Agitation [Recovering/Resolving]
  - Haemoglobin decreased [Unknown]
  - Product use in unapproved indication [Unknown]
  - Eye injury [Not Recovered/Not Resolved]
  - Depressed mood [Recovering/Resolving]
  - Fatigue [Recovering/Resolving]
  - Malaise [Unknown]
  - Gait disturbance [Not Recovered/Not Resolved]
